FAERS Safety Report 21591032 (Version 2)
Quarter: 2022Q4

REPORT INFORMATION
  Report Type: Spontaneous
  Country: US (occurrence: US)
  Receive Date: 20221114
  Receipt Date: 20221115
  Transmission Date: 20230112
  Serious: No
  Sender: FDA-Public Use
  Company Number: US-GLAXOSMITHKLINE-USCH2022042878

PATIENT
  Age: 64 Year

DRUGS (2)
  1. VOLTAREN [Suspect]
     Active Substance: DICLOFENAC SODIUM
     Indication: Epicondylitis
     Dosage: UNK
     Route: 061
     Dates: start: 20221011, end: 20221011
  2. CAMBIA [Suspect]
     Active Substance: DICLOFENAC POTASSIUM
     Indication: Migraine
     Dosage: UNK
     Route: 048

REACTIONS (2)
  - Dysgeusia [Unknown]
  - Off label use [Unknown]

NARRATIVE: CASE EVENT DATE: 20221011
